FAERS Safety Report 8958801 (Version 2)
Quarter: 2014Q1

REPORT INFORMATION
  Report Type: Spontaneous
  Country: US (occurrence: US)
  Receive Date: 20121212
  Receipt Date: 20140314
  Transmission Date: 20141002
  Serious: Yes (Hospitalization, Other)
  Sender: FDA-Public Use
  Company Number: US-BAYER-2012-129169

PATIENT
  Age: 30 Year
  Sex: Female
  Weight: 81.63 kg

DRUGS (7)
  1. YASMIN [Suspect]
     Dosage: UNK
     Dates: start: 200308, end: 200806
  2. OCELLA [Suspect]
     Dosage: UNK
     Dates: start: 200806, end: 200908
  3. LOPERAMIDE [Concomitant]
     Indication: DIARRHOEA
     Dosage: 2 MG 1 Q (EVERY) 4 H (HOURS) PRN (AS NEEDED)
     Route: 048
  4. OXYCODONE/APAP [Concomitant]
     Indication: PAIN
     Dosage: 5MG-325MG 1 Q 3 TO 4 H PRN
     Route: 048
  5. CLARINEX [DESLORATADINE] [Concomitant]
     Dosage: 1 QD (EVERY DAY)
     Route: 048
     Dates: start: 20060508, end: 20061013
  6. PREVACID [Concomitant]
     Dosage: 30 MG TAKE 1 BID ( TWICE DAILY)
     Route: 048
     Dates: start: 20020924, end: 20091230
  7. FLUOXETINE [Concomitant]
     Dosage: 20 MG TAKE 1 QD
     Route: 048
     Dates: start: 20030527, end: 20110224

REACTIONS (2)
  - Cholecystectomy [None]
  - Cholecystitis chronic [None]
